FAERS Safety Report 10101164 (Version 2)
Quarter: 2014Q2

REPORT INFORMATION
  Report Type: Spontaneous
  Country: ZA (occurrence: ZA)
  Receive Date: 20140424
  Receipt Date: 20140424
  Transmission Date: 20141212
  Serious: Yes (Other)
  Sender: FDA-Public Use
  Company Number: ZA-ASTRAZENECA-2014SE22704

PATIENT
  Age: 67 Year
  Sex: Female
  Weight: 82.3 kg

DRUGS (4)
  1. FASLODEX [Suspect]
     Indication: BREAST CANCER
     Route: 030
     Dates: start: 20130108, end: 20131210
  2. EUTHYROX [Concomitant]
     Route: 048
  3. CILIFT [Concomitant]
     Route: 048
  4. ADCO-RETIC [Concomitant]
     Route: 048

REACTIONS (1)
  - Hair growth abnormal [Recovered/Resolved]
